FAERS Safety Report 17956412 (Version 1)
Quarter: 2020Q2

REPORT INFORMATION
  Report Type: Spontaneous
  Country: CA (occurrence: CA)
  Receive Date: 20200629
  Receipt Date: 20200629
  Transmission Date: 20200714
  Serious: Yes (Disabling, Other)
  Sender: FDA-Public Use
  Company Number: CA-ACCORD-187302

PATIENT
  Age: 59 Year
  Sex: Female

DRUGS (11)
  1. MS IR [Concomitant]
     Active Substance: MORPHINE SULFATE
     Dosage: NOT SPECIFIED,AS REQUIRED
  2. PANTOPRAZOLE [Concomitant]
     Active Substance: PANTOPRAZOLE
  3. RAMIPRIL. [Concomitant]
     Active Substance: RAMIPRIL
     Dosage: NOT SPECIFIED
  4. ZOFRAN [Concomitant]
     Active Substance: ONDANSETRON HYDROCHLORIDE
     Dosage: AS REQUIRED
  5. WELLBUTRIN [Concomitant]
     Active Substance: BUPROPION HYDROCHLORIDE
  6. METHOTREXATE. [Suspect]
     Active Substance: METHOTREXATE
     Indication: PRODUCT USED FOR UNKNOWN INDICATION
     Route: 058
  7. FOLIC ACID. [Concomitant]
     Active Substance: FOLIC ACID
     Dosage: NOT SPECIFIED
     Route: 065
  8. HYDROXYCHLOROQUINE [Concomitant]
     Active Substance: HYDROXYCHLOROQUINE
  9. AMILORIDE/HYDROCHLOROTHIAZIDE [Concomitant]
     Active Substance: AMILORIDE HYDROCHLORIDE\HYDROCHLOROTHIAZIDE
  10. VITAMIN B12 [Concomitant]
     Active Substance: CYANOCOBALAMIN
  11. CLONAZEPAM. [Concomitant]
     Active Substance: CLONAZEPAM
     Route: 065

REACTIONS (7)
  - Headache [Not Recovered/Not Resolved]
  - Impaired work ability [Not Recovered/Not Resolved]
  - Alopecia [Not Recovered/Not Resolved]
  - Fatigue [Not Recovered/Not Resolved]
  - Product use issue [Unknown]
  - Rheumatoid arthritis [Not Recovered/Not Resolved]
  - Migraine [Not Recovered/Not Resolved]
